FAERS Safety Report 7137802-7 (Version None)
Quarter: 2010Q4

REPORT INFORMATION
  Report Type: 
  Country: None (occurrence: None)
  Receive Date: 20101103
  Receipt Date: 20100923
  Transmission Date: 20110411
  Serious: Yes (Other)
  Sender: FDA-Public Use
  Company Number: US-WYE-H17756110

PATIENT
  Age: 22 Year
  Sex: Female
  Weight: 46.31 kg

DRUGS (1)
  1. EFFEXOR XR [Suspect]
     Dosage: 37.5 MG 1X PER 1 DAY, ORAL
     Route: 048
     Dates: start: 20100910

REACTIONS (5)
  - BREATH ALCOHOL TEST POSITIVE [None]
  - NAUSEA [None]
  - PAIN [None]
  - ROAD TRAFFIC ACCIDENT [None]
  - VOMITING [None]
